FAERS Safety Report 26156871 (Version 1)
Quarter: 2025Q4

REPORT INFORMATION
  Report Type: Spontaneous
  Country: US (occurrence: None)
  Receive Date: 20251212
  Receipt Date: 20251212
  Transmission Date: 20260117
  Serious: Yes (Other)
  Sender: FDA-CTU
  Company Number: None

PATIENT
  Age: 56 Year
  Sex: Female
  Weight: 68 kg

DRUGS (1)
  1. IRON SUCROSE [Suspect]
     Active Substance: IRON SUCROSE
     Indication: Iron deficiency
     Dosage: OTHER FREQUENCY : ONCE;
     Route: 041
     Dates: start: 20251210, end: 20251210

REACTIONS (9)
  - Dizziness [None]
  - Feeling hot [None]
  - Hyperhidrosis [None]
  - Paraesthesia [None]
  - Flatulence [None]
  - Abdominal distension [None]
  - Abdominal pain [None]
  - Hypotension [None]
  - Infusion related reaction [None]

NARRATIVE: CASE EVENT DATE: 20251210
